FAERS Safety Report 14676714 (Version 1)
Quarter: 2018Q1

REPORT INFORMATION
  Report Type: Report from Study
  Country: JP (occurrence: JP)
  Receive Date: 20180324
  Receipt Date: 20180324
  Transmission Date: 20180509
  Serious: Yes (Other)
  Sender: FDA-Public Use
  Company Number: JP-ROCHE-2094279

PATIENT
  Age: 90 Year

DRUGS (3)
  1. TEMOZOLOMIDE. [Suspect]
     Active Substance: TEMOZOLOMIDE
     Indication: GLIOMA
     Dosage: ON DAYS 1 (2) AND 5 (6) IN 28-DAY CYCLE AT A DOSE OF 150-200 MG/M2.
     Route: 065
  2. BEVACIZUMAB. [Suspect]
     Active Substance: BEVACIZUMAB
     Dosage: DAYS 1 AND 15 IN THE FIRST 28-DAY CYCLE, AND ON DAY 1 IN THE SUBSEQUENT CYCLES AT A DOSE OF 10 MG/KG
     Route: 065
  3. BEVACIZUMAB. [Suspect]
     Active Substance: BEVACIZUMAB
     Indication: GLIOMA
     Dosage: DAYS 1 AND 15 IN THE FIRST 28-DAY CYCLE, AND ON DAY 1 IN THE SUBSEQUENT CYCLES AT A DOSE OF 10 MG/KG
     Route: 065

REACTIONS (2)
  - Hepatic function abnormal [Unknown]
  - Drug administration error [Unknown]
